FAERS Safety Report 9398123 (Version 3)
Quarter: 2013Q3

REPORT INFORMATION
  Report Type: Report from Study
  Country: US (occurrence: US)
  Receive Date: 20130712
  Receipt Date: 20130815
  Transmission Date: 20140515
  Serious: Yes (Hospitalization)
  Sender: FDA-Public Use
  Company Number: US-PFIZER INC-2013202645

PATIENT
  Age: 72 Year
  Sex: Female
  Weight: 93 kg

DRUGS (11)
  1. BLINDED CELECOXIB [Suspect]
     Indication: ADENOCARCINOMA OF COLON
     Dosage: 40 MG, CYCLIC
     Route: 048
     Dates: start: 20130513
  2. BLINDED PLACEBO [Suspect]
     Indication: ADENOCARCINOMA OF COLON
     Dosage: 40 MG, CYCLIC
     Route: 048
     Dates: start: 20130513
  3. FLUOROURACIL [Suspect]
     Indication: ADENOCARCINOMA OF COLON
     Dosage: 400 MG/M2 IVP ON DAY 1
     Route: 042
     Dates: start: 20130513
  4. FLUOROURACIL [Suspect]
     Dosage: 2400 MG/M2 IV OVER 46-48 HOURS ON DAY 1
     Route: 042
     Dates: start: 20130513
  5. ELOXATIN [Suspect]
     Indication: ADENOCARCINOMA OF COLON
     Dosage: 85 MG/M2 IV OVER 2 HOURS ON DAY 1
     Route: 042
     Dates: start: 20130513
  6. LEUCOVORIN [Suspect]
     Indication: ADENOCARCINOMA OF COLON
     Dosage: 400MG/M2 IV OVER 2 HOURS ON DAY 1
     Route: 042
     Dates: start: 20130513
  7. LEVOTHROID [Concomitant]
  8. PANTOPRAZOLE [Concomitant]
  9. CLONAZEPAM [Concomitant]
  10. COMPAZINE [Concomitant]
  11. LOMOTIL [Concomitant]

REACTIONS (1)
  - Embolism [Recovering/Resolving]
